FAERS Safety Report 5618979-9 (Version None)
Quarter: 2008Q1

REPORT INFORMATION
  Report Type: 
  Country: None (occurrence: None)
  Receive Date: 20080207
  Receipt Date: 20080204
  Transmission Date: 20080703
  Serious: Yes (Other)
  Sender: FDA-Public Use
  Company Number: NL-BOEHRINGER INGELHEIM GMBH, GERMANY-2008-BP-01666RO

PATIENT
  Age: 66 Year
  Sex: Female

DRUGS (3)
  1. CYCLOPHOSPHAMIDE [Suspect]
     Indication: RHEUMATOID ARTHRITIS
  2. PREDNISONE TAB [Suspect]
     Indication: RHEUMATOID ARTHRITIS
  3. TRIMETHOPRIM/SULPHAMETHAZOLE [Concomitant]
     Indication: STENOTROPHOMONAS INFECTION
     Route: 048

REACTIONS (2)
  - DECUBITUS ULCER [None]
  - STENOTROPHOMONAS INFECTION [None]
